FAERS Safety Report 5781656-8 (Version None)
Quarter: 2008Q2

REPORT INFORMATION
  Report Type: 
  Country: None (occurrence: None)
  Receive Date: 20080623
  Receipt Date: 20070613
  Transmission Date: 20081010
  Serious: No
  Sender: FDA-Public Use
  Company Number: US-ASTRAZENECA-2007UW14118

PATIENT
  Age: 75 Year
  Sex: Female
  Weight: 62.1 kg

DRUGS (4)
  1. RHINOCORT [Suspect]
     Indication: NASOPHARYNGITIS
     Route: 045
  2. SYNTHROID [Concomitant]
  3. ASPIRIN [Concomitant]
  4. ALLOPURINOL [Concomitant]

REACTIONS (2)
  - FLATULENCE [None]
  - RETCHING [None]
